FAERS Safety Report 16624942 (Version 1)
Quarter: 2019Q3

REPORT INFORMATION
  Report Type: Spontaneous
  Country: US (occurrence: US)
  Receive Date: 20190724
  Receipt Date: 20190724
  Transmission Date: 20191004
  Serious: Yes (Other)
  Sender: FDA-Public Use
  Company Number: US-ROCHE-2360220

PATIENT
  Sex: Male

DRUGS (1)
  1. ACTIVASE [Suspect]
     Active Substance: ALTEPLASE
     Indication: CEREBROVASCULAR ACCIDENT
     Route: 065
     Dates: start: 20190716

REACTIONS (4)
  - Nervous system disorder [Not Recovered/Not Resolved]
  - Respiratory failure [Unknown]
  - Cerebral infarction [Unknown]
  - Haemorrhage [Unknown]

NARRATIVE: CASE EVENT DATE: 20190716
